FAERS Safety Report 8140461-8 (Version None)
Quarter: 2012Q1

REPORT INFORMATION
  Report Type: 
  Country: None (occurrence: None)
  Receive Date: 20120216
  Receipt Date: 20120213
  Transmission Date: 20120608
  Serious: Yes (Other)
  Sender: FDA-Public Use
  Company Number: US-PFIZER INC-2012039569

PATIENT
  Sex: Female

DRUGS (3)
  1. PREMARIN [Suspect]
     Dosage: UNK
  2. DEPO-MEDROL [Suspect]
     Dosage: UNK
  3. NORVASC [Suspect]
     Dosage: UNK

REACTIONS (2)
  - MYALGIA [None]
  - STENT PLACEMENT [None]
